FAERS Safety Report 20333051 (Version 2)
Quarter: 2022Q1

REPORT INFORMATION
  Report Type: Report from Study
  Country: US (occurrence: US)
  Receive Date: 20220113
  Receipt Date: 20220217
  Transmission Date: 20220423
  Serious: Yes (Hospitalization)
  Sender: FDA-Public Use
  Company Number: US-JNJFOC-20220113434

PATIENT
  Age: 70 Year
  Sex: Male
  Weight: 83 kg

DRUGS (1)
  1. ERDAFITINIB [Suspect]
     Active Substance: ERDAFITINIB
     Indication: Transitional cell carcinoma
     Route: 048
     Dates: start: 20210826, end: 20211205

REACTIONS (2)
  - Vascular calcification [Recovered/Resolved with Sequelae]
  - Dry gangrene [Recovered/Resolved with Sequelae]

NARRATIVE: CASE EVENT DATE: 20220105
